FAERS Safety Report 5116833-2 (Version None)
Quarter: 2006Q3

REPORT INFORMATION
  Report Type: 
  Country: None (occurrence: None)
  Receive Date: 20060928
  Receipt Date: 20060918
  Transmission Date: 20061208
  Serious: Yes (Other)
  Sender: FDA-Public Use
  Company Number: US-ABBOTT-06P-163-0344119-00

PATIENT
  Sex: Female

DRUGS (6)
  1. VICODIN [Suspect]
     Indication: PAIN
     Dosage: 5/325
     Dates: start: 20060701
  2. VINFLUNINE [Suspect]
     Indication: SMALL CELL LUNG CANCER STAGE UNSPECIFIED
     Route: 042
     Dates: start: 20060802, end: 20060802
  3. TIZANIDINE HCL [Suspect]
     Indication: PAIN
     Dates: start: 20060801
  4. ALENDRONATE SODIUM [Concomitant]
     Indication: DRUG USE FOR UNKNOWN INDICATION
     Dates: start: 20010101
  5. ATORVASTATIN [Concomitant]
     Indication: DRUG USE FOR UNKNOWN INDICATION
     Dates: start: 20030101
  6. CALCIUM GLUCONATE [Concomitant]
     Indication: DRUG USE FOR UNKNOWN INDICATION
     Dates: start: 20040101

REACTIONS (5)
  - ANAEMIA [None]
  - CONSTIPATION [None]
  - LEUKOPENIA [None]
  - PAIN [None]
  - THROMBOCYTOPENIA [None]
